FAERS Safety Report 22637163 (Version 1)
Quarter: 2023Q2

REPORT INFORMATION
  Report Type: Spontaneous
  Country: PT (occurrence: PT)
  Receive Date: 20230626
  Receipt Date: 20230626
  Transmission Date: 20230722
  Serious: Yes (Death, Hospitalization, Other)
  Sender: FDA-Public Use
  Company Number: PT-MYLANLABS-2023M1057422

PATIENT
  Age: 60 Year
  Sex: Female

DRUGS (5)
  1. AZITHROMYCIN [Suspect]
     Active Substance: AZITHROMYCIN
     Indication: Disseminated mycobacterium avium complex infection
     Dosage: UNK
     Route: 065
  2. LINEZOLID [Suspect]
     Active Substance: LINEZOLID
     Indication: Disseminated mycobacterium avium complex infection
     Dosage: UNK
     Route: 065
  3. ETHAMBUTOL HYDROCHLORIDE [Suspect]
     Active Substance: ETHAMBUTOL HYDROCHLORIDE
     Indication: Disseminated mycobacterium avium complex infection
     Dosage: UNK
     Route: 065
  4. RIFABUTIN [Suspect]
     Active Substance: RIFABUTIN
     Indication: Disseminated mycobacterium avium complex infection
     Dosage: UNK
     Route: 065
  5. AMIKACIN [Suspect]
     Active Substance: AMIKACIN
     Indication: Disseminated mycobacterium avium complex infection
     Dosage: UNK
     Route: 065

REACTIONS (3)
  - Pathogen resistance [Fatal]
  - Drug ineffective [Fatal]
  - Off label use [Unknown]
